FAERS Safety Report 5534343-5 (Version None)
Quarter: 2007Q4

REPORT INFORMATION
  Report Type: 
  Country: None (occurrence: None)
  Receive Date: 20071205
  Receipt Date: 20071126
  Transmission Date: 20080405
  Serious: Yes (Death)
  Sender: FDA-Public Use
  Company Number: JP-GILEAD-2004-0007306

PATIENT
  Sex: Male

DRUGS (9)
  1. VIREAD [Suspect]
     Indication: HIV INFECTION
     Route: 048
     Dates: start: 20040609, end: 20040726
  2. EFAVIRENZ [Suspect]
     Indication: HIV INFECTION
     Route: 048
     Dates: start: 20040609, end: 20060927
  3. VOLTAREN [Suspect]
     Indication: HAEMOPHILIC ARTHROPATHY
     Route: 048
     Dates: start: 20041001, end: 20060927
  4. EPIVIR [Concomitant]
     Indication: HIV INFECTION
     Dates: start: 19990602, end: 20060927
  5. URSO 250 [Concomitant]
     Dates: start: 20040616, end: 20060927
  6. BLOPRESS [Concomitant]
     Dates: start: 20040616, end: 20041101
  7. ADALAT [Concomitant]
     Dates: start: 20040616, end: 20040818
  8. GASTER [Concomitant]
     Dates: start: 20040603, end: 20050914
  9. MUCOSTA [Concomitant]
     Dates: start: 20040603, end: 20041012

REACTIONS (2)
  - PROTEINURIA [None]
  - RENAL DISORDER [None]
